FAERS Safety Report 25372788 (Version 2)
Quarter: 2025Q2

REPORT INFORMATION
  Report Type: Spontaneous
  Country: RS (occurrence: RS)
  Receive Date: 20250529
  Receipt Date: 20250606
  Transmission Date: 20250716
  Serious: Yes (Hospitalization, Other)
  Sender: ALEXION PHARMACEUTICALS
  Company Number: RS-ASTRAZENECA-202505BKN019942RS

PATIENT

DRUGS (12)
  1. SYMBICORT [Suspect]
     Active Substance: BUDESONIDE\FORMOTEROL FUMARATE DIHYDRATE
     Indication: Asthma
     Dosage: 1 DOSAGE FORM, BID
  2. SYMBICORT [Suspect]
     Active Substance: BUDESONIDE\FORMOTEROL FUMARATE DIHYDRATE
     Indication: Chronic sinusitis
  3. FASENRA [Suspect]
     Active Substance: BENRALIZUMAB
     Dosage: 30 MILLIGRAM, Q8W
     Route: 065
  4. CICLESONIDE [Concomitant]
     Active Substance: CICLESONIDE
     Indication: Asthma
     Dosage: 2 DOSAGE FORM, QD IN THE MORNING
  5. CICLESONIDE [Concomitant]
     Active Substance: CICLESONIDE
     Indication: Chronic sinusitis
  6. MONTELUKAST [Concomitant]
     Active Substance: MONTELUKAST
     Indication: Asthma
     Dosage: 1 DOSAGE FORM, QD IN THE EVENING
  7. MONTELUKAST [Concomitant]
     Active Substance: MONTELUKAST
     Indication: Chronic sinusitis
  8. FENOTEROL\IPRATROPIUM BROMIDE [Concomitant]
     Active Substance: FENOTEROL\IPRATROPIUM BROMIDE
     Indication: Asthma
  9. FENOTEROL\IPRATROPIUM BROMIDE [Concomitant]
     Active Substance: FENOTEROL\IPRATROPIUM BROMIDE
     Indication: Chronic sinusitis
  10. MOMETASONE [Concomitant]
     Active Substance: MOMETASONE
     Indication: Asthma
  11. MOMETASONE [Concomitant]
     Active Substance: MOMETASONE
     Indication: Chronic sinusitis
  12. BECLOMETHASONE DIPROPIONATE\FORMOTEROL FUMARATE\GLYCOPYRROLATE [Concomitant]
     Active Substance: BECLOMETHASONE DIPROPIONATE\FORMOTEROL FUMARATE\GLYCOPYRROLATE

REACTIONS (9)
  - Asphyxia [Unknown]
  - Dyspnoea [Unknown]
  - Cough [Unknown]
  - Wheezing [Unknown]
  - Asthma [Recovered/Resolved]
  - Cushing^s syndrome [Unknown]
  - Hepatitis B [Unknown]
  - COVID-19 [Unknown]
  - Upper respiratory tract infection [Unknown]
